FAERS Safety Report 5449673-5 (Version None)
Quarter: 2007Q3

REPORT INFORMATION
  Report Type: 
  Country: None (occurrence: None)
  Receive Date: 20070910
  Receipt Date: 20070823
  Transmission Date: 20080115
  Serious: Yes (Other)
  Sender: FDA-Public Use
  Company Number: 2007EU001792

PATIENT
  Age: 51 Year
  Sex: Male

DRUGS (13)
  1. TACROLIMUS [Suspect]
     Indication: HEART TRANSPLANT
     Dates: start: 20060301
  2. AZATHIOPRINE [Suspect]
     Indication: HEART TRANSPLANT
     Dates: start: 19980801
  3. METOPROLOL TARTRATE [Concomitant]
  4. FUROSEMIDE [Concomitant]
  5. CILAZAPRIL (CILAZAPRIL) [Concomitant]
  6. OMEPRAZOLE [Concomitant]
  7. IBUBUFEN [Concomitant]
  8. PENTOXIFYLLINUM [Concomitant]
  9. ALLOPURINOL [Concomitant]
  10. ATROVASTATIN (ATORVASTATIN CALCIUM) [Concomitant]
  11. RILMENIDINE (RILMENIDINE) [Concomitant]
  12. ENELBIN [Concomitant]
  13. DETRALEX (HESPERIDIN, DIOSMIN) [Concomitant]

REACTIONS (9)
  - AORTIC DISORDER [None]
  - AORTIC DISSECTION [None]
  - AORTIC INJURY [None]
  - CARDIAC MYXOMA [None]
  - CORONARY ARTERY STENOSIS [None]
  - GASTROINTESTINAL DISORDER [None]
  - HEPATORENAL FAILURE [None]
  - PERIPHERAL ARTERY DISSECTION [None]
  - TRANSPLANT REJECTION [None]
